FAERS Safety Report 15592984 (Version 1)
Quarter: 2018Q4

REPORT INFORMATION
  Report Type: Spontaneous
  Country: IT (occurrence: IT)
  Receive Date: 20181107
  Receipt Date: 20181107
  Transmission Date: 20190205
  Serious: Yes (Other)
  Sender: FDA-Public Use
  Company Number: IT-EXELIXIS-CABO-18016779

PATIENT
  Age: 49 Year
  Sex: Male

DRUGS (11)
  1. XATRAL 10 MG COMPRESSE A RILASCIO PROLUNGATO [Concomitant]
     Dosage: ()
  2. FOSTER [Concomitant]
     Active Substance: BECLOMETHASONE\FORMOTEROL
     Dosage: ()
  3. PANTORC [Concomitant]
     Active Substance: PANTOPRAZOLE SODIUM
     Dosage: ()
  4. CABOMETYX [Suspect]
     Active Substance: CABOZANTINIB S-MALATE
     Indication: CLEAR CELL RENAL CELL CARCINOMA
     Dosage: 40 MG, QD
     Route: 048
     Dates: start: 20180627, end: 20181019
  5. CARDIOASPIRIN 100 MG COMPRESSE GASTRORESISTENTI [Concomitant]
     Active Substance: ASPIRIN
     Dosage: ()
  6. DEPAKIN 500 MG COMPRESSE GASTRORESISTENTI [Concomitant]
     Active Substance: VALPROATE SODIUM
     Dosage: ()
  7. VASORETIC [Concomitant]
     Active Substance: ENALAPRIL MALEATE\HYDROCHLOROTHIAZIDE
     Dosage: ()
  8. XANAX [Concomitant]
     Active Substance: ALPRAZOLAM
     Dosage: ()
  9. RIVOTRIL [Concomitant]
     Active Substance: CLONAZEPAM
     Dosage: ()
  10. ADALAT CRONO 60 MG COMPRESSE A RILASCIO MODIFICATO [Concomitant]
     Dosage: ()
  11. SEREUPIN 20 MG COMPRESSE RIVESTITE CON FILM [Concomitant]
     Dosage: ()

REACTIONS (3)
  - Palmar-plantar erythrodysaesthesia syndrome [Not Recovered/Not Resolved]
  - Stomatitis [Not Recovered/Not Resolved]
  - Pruritus [Not Recovered/Not Resolved]

NARRATIVE: CASE EVENT DATE: 20181019
